FAERS Safety Report 19724310 (Version 1)
Quarter: 2021Q3

REPORT INFORMATION
  Report Type: Spontaneous
  Country: VN (occurrence: VN)
  Receive Date: 20210819
  Receipt Date: 20210819
  Transmission Date: 20211014
  Serious: Yes (Death)
  Sender: FDA-Public Use
  Company Number: VN-ROCHE-2888728

PATIENT

DRUGS (2)
  1. ACTILYSE [Suspect]
     Active Substance: ALTEPLASE
     Indication: HAEMODYNAMIC INSTABILITY
     Dosage: THE REST 25 MG FOR ADDITIONAL 22 HOURS.
     Route: 065
     Dates: end: 202107
  2. ACTILYSE [Suspect]
     Active Substance: ALTEPLASE
     Indication: PULMONARY EMBOLISM
     Dosage: 25 MG FOR 2 HOURS
     Route: 065
     Dates: start: 202107

REACTIONS (1)
  - Death [Fatal]
